FAERS Safety Report 25034542 (Version 1)
Quarter: 2025Q1

REPORT INFORMATION
  Report Type: Spontaneous
  Country: NZ (occurrence: NZ)
  Receive Date: 20250304
  Receipt Date: 20250304
  Transmission Date: 20250408
  Serious: Yes (Other)
  Sender: ALKEM
  Company Number: NZ-ALKEM LABORATORIES LIMITED-NZ-ALKEM-2025-01805

PATIENT

DRUGS (1)
  1. CINACALCET [Suspect]
     Active Substance: CINACALCET
     Indication: Product used for unknown indication
     Route: 065

REACTIONS (1)
  - Torsade de pointes [Unknown]
